FAERS Safety Report 6803954-9 (Version None)
Quarter: 2010Q2

REPORT INFORMATION
  Report Type: 
  Country: None (occurrence: None)
  Receive Date: 20100628
  Receipt Date: 20060628
  Transmission Date: 20101027
  Serious: No
  Sender: FDA-Public Use
  Company Number: US-PFIZER INC-2006081789

PATIENT
  Sex: Female
  Weight: 68.49 kg

DRUGS (3)
  1. SUTENT [Suspect]
     Indication: RENAL CELL CARCINOMA
     Route: 048
     Dates: start: 20060520
  2. GRAPEFRUIT JUICE [Suspect]
     Indication: DRUG USE FOR UNKNOWN INDICATION
     Route: 065
  3. PRILOSEC [Concomitant]
     Indication: DYSPEPSIA
     Route: 065

REACTIONS (7)
  - EATING DISORDER [None]
  - FATIGUE [None]
  - FOOD INTERACTION [None]
  - GINGIVAL DISORDER [None]
  - GLOSSODYNIA [None]
  - LIP DISORDER [None]
  - SWOLLEN TONGUE [None]
